FAERS Safety Report 25257244 (Version 1)
Quarter: 2025Q2

REPORT INFORMATION
  Report Type: Spontaneous
  Country: US (occurrence: US)
  Receive Date: 20250430
  Receipt Date: 20250430
  Transmission Date: 20250717
  Serious: No
  Sender: DR REDDYS
  Company Number: US-DRL-USA-USA/2025/04/005972

PATIENT
  Age: 68 Year
  Sex: Female

DRUGS (2)
  1. BUDESONIDE [Suspect]
     Active Substance: BUDESONIDE
     Indication: Autoimmune hepatitis
  2. BOSUTINIB [Concomitant]
     Active Substance: BOSUTINIB
     Indication: Chronic myeloid leukaemia
     Dosage: DOSE DECREASED TO 100MG EVERY OTHER DAY

REACTIONS (4)
  - Muscular weakness [Unknown]
  - Diarrhoea [Unknown]
  - Fall [Unknown]
  - Drug effective for unapproved indication [Unknown]
